FAERS Safety Report 13652074 (Version 1)
Quarter: 2017Q2

REPORT INFORMATION
  Report Type: Spontaneous
  Country: FR (occurrence: FR)
  Receive Date: 20170614
  Receipt Date: 20170614
  Transmission Date: 20170830
  Serious: Yes (Hospitalization)
  Sender: FDA-Public Use
  Company Number: FR-UCBSA-2017022787

PATIENT
  Age: 2 Day
  Sex: Male

DRUGS (3)
  1. URBANYL [Suspect]
     Active Substance: CLOBAZAM
     Indication: PRODUCT USED FOR UNKNOWN INDICATION
     Dosage: 5 MG, ONCE DAILY (QD)
     Route: 064
     Dates: end: 20170519
  2. KEPPRA [Suspect]
     Active Substance: LEVETIRACETAM
     Indication: PRODUCT USED FOR UNKNOWN INDICATION
     Dosage: 1 DF 2/DAY
     Route: 064
     Dates: end: 20170519
  3. LAMICTAL [Suspect]
     Active Substance: LAMOTRIGINE
     Indication: PRODUCT USED FOR UNKNOWN INDICATION
     Dosage: 200 MG 2/DAY
     Route: 064
     Dates: end: 20170519

REACTIONS (5)
  - Strabismus [Unknown]
  - Foetal exposure during pregnancy [Unknown]
  - Hypotonia [Unknown]
  - Dyskinesia [Unknown]
  - Seizure [Unknown]

NARRATIVE: CASE EVENT DATE: 20170521
